FAERS Safety Report 24255249 (Version 3)
Quarter: 2024Q3

REPORT INFORMATION
  Report Type: Spontaneous
  Country: US (occurrence: US)
  Receive Date: 20240827
  Receipt Date: 20240923
  Transmission Date: 20241017
  Serious: Yes (Hospitalization)
  Sender: BIOMARIN
  Company Number: US-BIOMARINAP-US-2024-160061

PATIENT

DRUGS (2)
  1. VIMIZIM [Suspect]
     Active Substance: ELOSULFASE ALFA
     Indication: Mucopolysaccharidosis IV
     Dosage: 75 MILLIGRAM, QW
     Route: 042
     Dates: start: 201511
  2. VIMIZIM [Suspect]
     Active Substance: ELOSULFASE ALFA
     Dosage: UNK, QW
     Route: 042
     Dates: start: 20141201

REACTIONS (8)
  - Tracheal stenosis [Recovering/Resolving]
  - Mass [Recovering/Resolving]
  - Weight decreased [Not Recovered/Not Resolved]
  - Dysphagia [Recovering/Resolving]
  - Eating disorder [Recovering/Resolving]
  - Hypophagia [Recovering/Resolving]
  - Vomiting [Not Recovered/Not Resolved]
  - Cholelithiasis [Recovering/Resolving]

NARRATIVE: CASE EVENT DATE: 20240720
